FAERS Safety Report 19884374 (Version 1)
Quarter: 2021Q3

REPORT INFORMATION
  Report Type: Spontaneous
  Country: US (occurrence: US)
  Receive Date: 20210924
  Receipt Date: 20210924
  Transmission Date: 20211014
  Serious: Yes (Other)
  Sender: FDA-Public Use
  Company Number: None

PATIENT
  Age: 65 Year
  Sex: Female
  Weight: 69.76 kg

DRUGS (8)
  1. FLUTICASONE PROPIONATE AND SALMETEROL [Suspect]
     Active Substance: FLUTICASONE PROPIONATE\SALMETEROL XINAFOATE
     Indication: ASTHMA
     Dosage: ?          QUANTITY:1 DF DOSAGE FORM;?
     Route: 048
     Dates: start: 20210817, end: 20210916
  2. VITAMIN D [Concomitant]
     Active Substance: VITAMIN D NOS
  3. LOSARTAN. [Concomitant]
     Active Substance: LOSARTAN
  4. MULTI VIT. [Concomitant]
  5. METOPROLOL TARTRATE. [Concomitant]
     Active Substance: METOPROLOL TARTRATE
  6. AMLODIPINE [Concomitant]
     Active Substance: AMLODIPINE BESYLATE
  7. ALBUTEROL HFA [Concomitant]
     Active Substance: ALBUTEROL SULFATE
  8. PRASCO FLUTICASON?SAL. [Concomitant]

REACTIONS (10)
  - Asthma [None]
  - Cough [None]
  - Product contamination physical [None]
  - Sputum retention [None]
  - Condition aggravated [None]
  - Choking [None]
  - Chest discomfort [None]
  - Dyspnoea [None]
  - Feeling abnormal [None]
  - Night sweats [None]

NARRATIVE: CASE EVENT DATE: 20210828
